FAERS Safety Report 8343836-7 (Version None)
Quarter: 2012Q2

REPORT INFORMATION
  Report Type: 
  Country: None (occurrence: None)
  Receive Date: 20120508
  Receipt Date: 20100820
  Transmission Date: 20120825
  Serious: Yes (Hospitalization)
  Sender: FDA-Public Use
  Company Number: US-TEVA-2010004313

PATIENT
  Sex: Male

DRUGS (3)
  1. ALLOPURINOL [Concomitant]
  2. TREANDA [Suspect]
     Indication: NON-HODGKIN'S LYMPHOMA
     Route: 042
  3. RITUXAN [Concomitant]

REACTIONS (2)
  - RASH [None]
  - PYREXIA [None]
